FAERS Safety Report 5619855-8 (Version None)
Quarter: 2008Q1

REPORT INFORMATION
  Report Type: 
  Country: None (occurrence: None)
  Receive Date: 20080208
  Receipt Date: 20080125
  Transmission Date: 20080703
  Serious: Yes (Death, Hospitalization)
  Sender: FDA-Public Use
  Company Number: SK-AMGEN-US198558

PATIENT
  Sex: Male

DRUGS (5)
  1. ENBREL [Suspect]
     Indication: RHEUMATOID ARTHRITIS
     Route: 058
     Dates: start: 20040201, end: 20060910
  2. VEROSPIRON [Concomitant]
     Indication: HYPERTENSION
     Dosage: UNKNOWN
     Route: 065
  3. PREDNISONUM [Concomitant]
     Indication: ARTHRITIS
     Dosage: UNKNOWN
     Route: 065
  4. DOBUTAMINE [Concomitant]
     Indication: CARDIOMYOPATHY
     Dosage: UNKNOWN
     Route: 065
  5. FUROSEMIDE [Concomitant]
     Indication: HYPERTENSION
     Dosage: UNKNOWN
     Route: 065

REACTIONS (2)
  - BRONCHOPNEUMONIA [None]
  - CARDIAC FAILURE [None]
